FAERS Safety Report 18707636 (Version 1)
Quarter: 2021Q1

REPORT INFORMATION
  Report Type: Spontaneous
  Country: US (occurrence: US)
  Receive Date: 20210106
  Receipt Date: 20210106
  Transmission Date: 20210419
  Serious: Yes (Other)
  Sender: FDA-Public Use
  Company Number: US-TEVA-2020-US-1865384

PATIENT
  Age: 78 Year
  Sex: Female

DRUGS (7)
  1. LEVALBUTEROL. [Suspect]
     Active Substance: LEVALBUTEROL
     Route: 065
  2. ALBUTEROL HFA INHALER [Concomitant]
     Active Substance: ALBUTEROL
     Route: 065
  3. MEMANTINE. [Concomitant]
     Active Substance: MEMANTINE
     Route: 065
  4. FUROSEMIDE. [Concomitant]
     Active Substance: FUROSEMIDE
     Route: 065
  5. ATORVASTATIN [Concomitant]
     Active Substance: ATORVASTATIN
     Route: 065
  6. LOSARTAN. [Concomitant]
     Active Substance: LOSARTAN
     Route: 065
  7. POTASSIUM CHLORIDE. [Concomitant]
     Active Substance: POTASSIUM CHLORIDE
     Route: 065

REACTIONS (4)
  - Scratch [Unknown]
  - Pruritus [Unknown]
  - Rash [Not Recovered/Not Resolved]
  - Measles [Unknown]

NARRATIVE: CASE EVENT DATE: 20201001
